FAERS Safety Report 10432544 (Version 1)
Quarter: 2014Q3

REPORT INFORMATION
  Report Type: Spontaneous
  Country: FR (occurrence: FR)
  Receive Date: 20140905
  Receipt Date: 20140905
  Transmission Date: 20150326
  Serious: Yes (Hospitalization)
  Sender: FDA-Public Use
  Company Number: FR-JNJFOC-20140900828

PATIENT
  Age: 85 Year
  Sex: Male

DRUGS (5)
  1. CRESTOR [Suspect]
     Active Substance: ROSUVASTATIN CALCIUM
     Indication: PRODUCT USED FOR UNKNOWN INDICATION
     Route: 048
     Dates: start: 20140112
  2. DAFALGAN [Suspect]
     Active Substance: ACETAMINOPHEN
     Indication: PAIN
     Route: 048
     Dates: start: 20140113
  3. TOPALGIC LP [Suspect]
     Active Substance: TRAMADOL
     Indication: PAIN
     Route: 048
     Dates: start: 20140113
  4. XARELTO [Suspect]
     Active Substance: RIVAROXABAN
     Indication: PERIPHERAL ISCHAEMIA
     Dosage: FILM COATED TABLET
     Route: 048
     Dates: start: 20140112, end: 20140113
  5. KARDEGIC [Suspect]
     Active Substance: ASPIRIN LYSINE
     Indication: PERIPHERAL ISCHAEMIA
     Route: 048
     Dates: start: 20140112

REACTIONS (1)
  - Renal failure acute [Unknown]

NARRATIVE: CASE EVENT DATE: 20140113
